FAERS Safety Report 5021930-6 (Version None)
Quarter: 2006Q2

REPORT INFORMATION
  Report Type: 
  Country: None (occurrence: None)
  Receive Date: 20060605
  Receipt Date: 20060518
  Transmission Date: 20061013
  Serious: Yes (Other)
  Sender: FDA-Public Use
  Company Number: 29282

PATIENT
  Age: 55 Year
  Sex: Female

DRUGS (13)
  1. ALDARA [Suspect]
     Indication: ACTINIC KERATOSIS
     Dosage: (2 IN 1 WEEK (S)), TOPICAL
     Route: 061
     Dates: start: 20051201, end: 20060101
  2. ALDARA [Suspect]
     Indication: PHOTODERMATOSIS
     Dosage: (2 IN 1 WEEK (S)), TOPICAL
     Route: 061
     Dates: start: 20051201, end: 20060101
  3. ALDARA [Suspect]
     Indication: ACTINIC KERATOSIS
     Dosage: (2 IN 1 WEEK (S)), TOPICAL
     Route: 061
     Dates: start: 20060201, end: 20060301
  4. ALDARA [Suspect]
     Indication: PHOTODERMATOSIS
     Dosage: (2 IN 1 WEEK (S)), TOPICAL
     Route: 061
     Dates: start: 20060201, end: 20060301
  5. SALICYLIC ACID PEEL [Suspect]
     Dates: start: 20060101, end: 20060101
  6. LEVULAN [Suspect]
     Dates: start: 20060101, end: 20060101
  7. LASER TREATMENT [Suspect]
     Dates: start: 20060101, end: 20060101
  8. PHOTODYNAMIC THERAPY [Suspect]
     Dates: start: 20060101, end: 20060101
  9. ESTRATEST [Suspect]
     Indication: HORMONE REPLACEMENT THERAPY
     Dates: end: 20060401
  10. ATENOLOL [Suspect]
     Dates: end: 20060401
  11. MAXZIDE [Suspect]
     Indication: HYPERTENSION
     Dates: end: 20060401
  12. IBUPROFEN [Concomitant]
  13. MULTIVITAMIN [Concomitant]

REACTIONS (6)
  - APPLICATION SITE ERYTHEMA [None]
  - APPLICATION SITE REACTION [None]
  - CUTANEOUS LUPUS ERYTHEMATOSUS [None]
  - POST PROCEDURAL COMPLICATION [None]
  - POST PROCEDURAL OEDEMA [None]
  - PROCEDURAL PAIN [None]
